FAERS Safety Report 10259387 (Version 1)
Quarter: 2014Q2

REPORT INFORMATION
  Report Type: Spontaneous
  Country: US (occurrence: US)
  Receive Date: 20140625
  Receipt Date: 20140625
  Transmission Date: 20141212
  Serious: No
  Sender: FDA-Public Use
  Company Number: US-ASTELLAS-2014US004327

PATIENT
  Sex: Female

DRUGS (4)
  1. VESICARE [Suspect]
     Indication: PRODUCT USED FOR UNKNOWN INDICATION
     Route: 048
  2. EXCEDRIN                           /00110301/ [Concomitant]
     Indication: PAIN
     Dosage: 250 MG, AS NEEDED
     Route: 048
  3. ASPIRIN [Concomitant]
     Indication: CARDIAC DISORDER
     Route: 048
  4. PRILOSEC                           /00661201/ [Concomitant]
     Indication: GASTRIC DISORDER
     Route: 048

REACTIONS (1)
  - Dry mouth [Unknown]
